FAERS Safety Report 4999686-2 (Version None)
Quarter: 2006Q2

REPORT INFORMATION
  Report Type: 
  Country: None (occurrence: None)
  Receive Date: 20060511
  Receipt Date: 20060504
  Transmission Date: 20061013
  Serious: Yes (Hospitalization, Disabling)
  Sender: FDA-Public Use
  Company Number: US-MERCK-0605USA01081

PATIENT
  Age: 46 Year
  Sex: Female
  Weight: 136 kg

DRUGS (13)
  1. VIOXX [Suspect]
     Indication: INFLAMMATION
     Route: 048
     Dates: start: 20020501, end: 20030201
  2. PREMARIN [Concomitant]
     Route: 065
  3. ACCOLATE [Concomitant]
     Route: 065
  4. PLAVIX [Concomitant]
     Route: 065
  5. SEREVENT [Concomitant]
     Route: 065
  6. VENTOLIN [Concomitant]
     Route: 065
  7. RISPERDAL [Concomitant]
     Route: 065
  8. ACETAMINOPHEN AND PROPOXYPHENE NAPSYLATE [Concomitant]
     Route: 065
  9. GLUCOPHAGE [Concomitant]
     Route: 065
  10. NAPROXEN [Concomitant]
     Route: 065
  11. MOTRIN [Concomitant]
     Route: 065
  12. EXCEDRIN (MIGRAINE) [Concomitant]
     Route: 065
  13. IBUPROFEN [Concomitant]
     Route: 065

REACTIONS (3)
  - CEREBROVASCULAR ACCIDENT [None]
  - EMOTIONAL DISORDER [None]
  - MEMORY IMPAIRMENT [None]
